FAERS Safety Report 17610510 (Version 4)
Quarter: 2022Q3

REPORT INFORMATION
  Report Type: Spontaneous
  Country: US (occurrence: US)
  Receive Date: 20200401
  Receipt Date: 20220927
  Transmission Date: 20221027
  Serious: Yes (Other)
  Sender: FDA-Public Use
  Company Number: US-PFIZER INC-2020134094

PATIENT
  Age: 64 Year
  Sex: Female
  Weight: 72.57 kg

DRUGS (3)
  1. PREMARIN [Suspect]
     Active Substance: ESTROGENS, CONJUGATED
     Indication: Vulvovaginal dryness
     Dosage: AS NEEDED (INSERTS VAGINALLY WEEKLY AS NEED)
     Route: 067
     Dates: start: 2016
  2. PREMARIN [Suspect]
     Active Substance: ESTROGENS, CONJUGATED
     Indication: Hormone therapy
     Dosage: 0.3 MG, DAILY
     Route: 048
     Dates: start: 198406
  3. TOPROL XL [Concomitant]
     Active Substance: METOPROLOL SUCCINATE
     Indication: Tachycardia
     Dosage: 50 MG, DAILY (DAILY AT NIGHT)
     Dates: start: 2015

REACTIONS (4)
  - Nerve compression [Unknown]
  - Influenza like illness [Unknown]
  - Oropharyngeal pain [Recovering/Resolving]
  - Off label use [Unknown]

NARRATIVE: CASE EVENT DATE: 20160101
